FAERS Safety Report 25205551 (Version 3)
Quarter: 2025Q3

REPORT INFORMATION
  Report Type: Spontaneous
  Country: EU (occurrence: EU)
  Receive Date: 20250417
  Receipt Date: 20250801
  Transmission Date: 20251020
  Serious: Yes (Other)
  Sender: RANBAXY
  Company Number: EU-AFSSAPS-AM2025000037

PATIENT
  Sex: Female
  Weight: 0.5 kg

DRUGS (9)
  1. ESOMEPRAZOLE [Suspect]
     Active Substance: ESOMEPRAZOLE
     Indication: Cystic fibrosis
     Dosage: 20 MILLIGRAM, DAILY
     Route: 064
     Dates: start: 20240415, end: 20250109
  2. DESLORATADINE [Suspect]
     Active Substance: DESLORATADINE
     Indication: Product used for unknown indication
     Dosage: 1 DOSAGE FORM, DAILY
     Route: 064
     Dates: start: 20240415, end: 20250109
  3. ELEXACAFTOR\IVACAFTOR\TEZACAFTOR [Suspect]
     Active Substance: ELEXACAFTOR\IVACAFTOR\TEZACAFTOR
     Indication: Cystic fibrosis
     Dosage: 2 DOSAGE FORM, DAILY
     Route: 064
     Dates: start: 20240415, end: 20250109
  4. KALYDECO [Suspect]
     Active Substance: IVACAFTOR
     Indication: Cystic fibrosis
     Dosage: 150 MILLIGRAM, DAILY
     Route: 064
     Dates: start: 20240415, end: 20250109
  5. PANCRELIPASE [Suspect]
     Active Substance: PANCRELIPASE
     Indication: Cystic fibrosis
     Dosage: 12 DOSAGE FORM, DAILY
     Route: 064
     Dates: start: 20240415, end: 20250109
  6. TRIAMCINOLONE [Suspect]
     Active Substance: TRIAMCINOLONE
     Indication: Cystic fibrosis
     Dosage: 2 DOSAGE FORM, DAILY
     Route: 064
     Dates: start: 20240415, end: 20250109
  7. BUDESONIDE [Suspect]
     Active Substance: BUDESONIDE
     Indication: Cystic fibrosis
     Route: 064
     Dates: start: 20240415, end: 20250109
  8. FORMOTEROL [Suspect]
     Active Substance: FORMOTEROL
     Indication: Cystic fibrosis
     Route: 064
     Dates: start: 20240415, end: 20250109
  9. CHOLECALCIFEROL [Suspect]
     Active Substance: CHOLECALCIFEROL
     Indication: Vitamin supplementation
     Dosage: 2 DOSAGE FORM, MONTHLY
     Route: 064
     Dates: start: 20240415, end: 20250109

REACTIONS (2)
  - Pericardial effusion [Recovered/Resolved]
  - Maternal exposure during pregnancy [Recovered/Resolved]

NARRATIVE: CASE EVENT DATE: 20240415
